FAERS Safety Report 13638187 (Version 1)
Quarter: 2017Q2

REPORT INFORMATION
  Report Type: Spontaneous
  Country: US (occurrence: US)
  Receive Date: 20170609
  Receipt Date: 20170609
  Transmission Date: 20170830
  Serious: Yes (Other)
  Sender: FDA-Public Use
  Company Number: US-SA-2017SA102441

PATIENT
  Age: 83 Year
  Sex: Female

DRUGS (2)
  1. SOLOSTAR [Concomitant]
     Active Substance: DEVICE
     Dates: start: 201701
  2. LANTUS SOLOSTAR [Suspect]
     Active Substance: INSULIN GLARGINE
     Indication: TYPE 2 DIABETES MELLITUS
     Dosage: DOSE- 15 UNITS AT NIGHT AND 60 UNITS IN THE MORNING IF BLOOD SUGAR IS ABOVE 100
     Route: 051
     Dates: start: 201001

REACTIONS (2)
  - Product use issue [Unknown]
  - Macular degeneration [Unknown]
